FAERS Safety Report 8310494-7 (Version None)
Quarter: 2012Q2

REPORT INFORMATION
  Report Type: 
  Country: None (occurrence: None)
  Receive Date: 20120425
  Receipt Date: 20120316
  Transmission Date: 20120825
  Serious: No
  Sender: FDA-Public Use
  Company Number: JP-ROCHE-1056032

PATIENT
  Age: 1 Year
  Sex: Female

DRUGS (1)
  1. TAMIFLU [Suspect]
     Indication: PRODUCT USED FOR UNKNOWN INDICATION
     Dosage: DOSAGE IS UNCERTAIN.
     Route: 048
     Dates: start: 20120321

REACTIONS (2)
  - NO ADVERSE EVENT [None]
  - OVERDOSE [None]
